FAERS Safety Report 25403922 (Version 3)
Quarter: 2025Q3

REPORT INFORMATION
  Report Type: Spontaneous
  Country: AU (occurrence: AU)
  Receive Date: 20250606
  Receipt Date: 20250721
  Transmission Date: 20251021
  Serious: Yes (Hospitalization, Other)
  Sender: CSL BEHRING
  Company Number: AU-BEH-2025207898

PATIENT
  Age: 75 Year
  Sex: Male
  Weight: 57 kg

DRUGS (1)
  1. HUMAN IMMUNOGLOBULIN G [Suspect]
     Active Substance: HUMAN IMMUNOGLOBULIN G
     Indication: Neutropenic sepsis
     Route: 042
     Dates: start: 20250211, end: 20250211

REACTIONS (14)
  - Anaphylactic reaction [Unknown]
  - Bronchospasm [Unknown]
  - Oxygen saturation decreased [Recovered/Resolved]
  - Livedo reticularis [Recovered/Resolved]
  - Pleural effusion [Unknown]
  - Blood lactic acid increased [Unknown]
  - Wheezing [Unknown]
  - Chills [Unknown]
  - Cough [Unknown]
  - Hyperhidrosis [Unknown]
  - Anxiety [Unknown]
  - Tachycardia [Unknown]
  - Off label use [Unknown]
  - Dyspnoea [Unknown]

NARRATIVE: CASE EVENT DATE: 20250211
